FAERS Safety Report 14249065 (Version 1)
Quarter: 2017Q4

REPORT INFORMATION
  Report Type: Spontaneous
  Country: US (occurrence: US)
  Receive Date: 20171204
  Receipt Date: 20171204
  Transmission Date: 20180321
  Serious: No
  Sender: FDA-Public Use
  Company Number: US-GLAXOSMITHKLINE-US2017GSK184456

PATIENT
  Sex: Male

DRUGS (19)
  1. URSODIOL. [Concomitant]
     Active Substance: URSODIOL
  2. METOPROLOL. [Concomitant]
     Active Substance: METOPROLOL
  3. OMEPRAZOLE. [Concomitant]
     Active Substance: OMEPRAZOLE
  4. TAMSULOSIN [Concomitant]
     Active Substance: TAMSULOSIN
  5. FLOVENT [Suspect]
     Active Substance: FLUTICASONE PROPIONATE
     Indication: PRODUCT USED FOR UNKNOWN INDICATION
     Route: 048
  6. COLCHICINE. [Concomitant]
     Active Substance: COLCHICINE
  7. ENOXAPARIN [Concomitant]
     Active Substance: ENOXAPARIN
  8. BENZONATATE. [Concomitant]
     Active Substance: BENZONATATE
  9. SERTRALINE [Concomitant]
     Active Substance: SERTRALINE HYDROCHLORIDE
  10. FOLIC ACID. [Concomitant]
     Active Substance: FOLIC ACID
  11. WARFARIN [Concomitant]
     Active Substance: WARFARIN
  12. ATORVASTATIN [Concomitant]
     Active Substance: ATORVASTATIN
  13. NYSTATIN. [Concomitant]
     Active Substance: NYSTATIN
  14. VIRTUSSIN A/C [Concomitant]
     Active Substance: CODEINE PHOSPHATE\GUAIFENESIN
  15. OCALIVA [Suspect]
     Active Substance: OBETICHOLIC ACID
     Indication: BILIARY CIRRHOSIS PRIMARY
     Dosage: 5 MG, QD
     Dates: start: 20170309
  16. CEPHALEXIN. [Concomitant]
     Active Substance: CEPHALEXIN
  17. CYANOCOBALAMIN. [Concomitant]
     Active Substance: CYANOCOBALAMIN
  18. MONTELUKAST [Concomitant]
     Active Substance: MONTELUKAST SODIUM
  19. MUPIROCIN. [Concomitant]
     Active Substance: MUPIROCIN

REACTIONS (1)
  - Dysphonia [Unknown]
